FAERS Safety Report 21096492 (Version 1)
Quarter: 2022Q3

REPORT INFORMATION
  Report Type: Spontaneous
  Country: TR (occurrence: TR)
  Receive Date: 20220718
  Receipt Date: 20220718
  Transmission Date: 20221027
  Serious: Yes (Other)
  Sender: FDA-Public Use
  Company Number: TR-ANIPHARMA-2022-TR-000084

PATIENT
  Age: 46 Year
  Sex: Female

DRUGS (2)
  1. LITHIUM [Suspect]
     Active Substance: LITHIUM
     Indication: Major depression
  2. URSODIOL [Suspect]
     Active Substance: URSODIOL
     Indication: Nausea
     Dosage: 250 MG DAILY

REACTIONS (3)
  - Drug interaction [Recovered/Resolved]
  - Drug level decreased [Recovered/Resolved]
  - Hypercalcaemia [Recovered/Resolved]
